FAERS Safety Report 6912241-X (Version None)
Quarter: 2010Q3

REPORT INFORMATION
  Report Type: 
  Country: None (occurrence: None)
  Receive Date: 20100806
  Receipt Date: 20080206
  Transmission Date: 20110219
  Serious: No
  Sender: FDA-Public Use
  Company Number: US-PFIZER INC-2007105191

PATIENT
  Sex: Male
  Weight: 99.545 kg

DRUGS (1)
  1. VFEND [Suspect]
     Indication: MENINGITIS COCCIDIOIDES
     Route: 048
     Dates: start: 20060901

REACTIONS (5)
  - AGGRESSION [None]
  - ALANINE AMINOTRANSFERASE INCREASED [None]
  - ASPARTATE AMINOTRANSFERASE INCREASED [None]
  - IRRITABILITY [None]
  - MOOD ALTERED [None]
